FAERS Safety Report 7359524-X (Version None)
Quarter: 2011Q1

REPORT INFORMATION
  Report Type: 
  Country: None (occurrence: None)
  Receive Date: 20110317
  Receipt Date: 20110309
  Transmission Date: 20110831
  Serious: Yes (Death)
  Sender: FDA-Public Use
  Company Number: JP-ACTELION-A-CH2011-46095

PATIENT
  Sex: Female
  Weight: 48 kg

DRUGS (12)
  1. TRACLEER [Suspect]
     Indication: PULMONARY ARTERIAL HYPERTENSION
     Dosage: 62.5 MG, BID
     Route: 048
     Dates: start: 20110121, end: 20110128
  2. ENALAPRIL MALEATE [Concomitant]
  3. CLONAZEPAM [Concomitant]
  4. FERROUS SULFATE TAB [Concomitant]
  5. ATORVASTATIN CALCIUM [Concomitant]
  6. MIRTAZAPINE [Concomitant]
  7. GLIMEPIRIDE [Concomitant]
  8. PIOGLITAZONE HYDROCHLORIDE [Concomitant]
  9. FUROSEMIDE [Concomitant]
  10. OXYCODONE HYDROCHLORIDE [Concomitant]
  11. LOXOPROFEN SODIUM [Concomitant]
  12. OXYGEN [Concomitant]

REACTIONS (3)
  - HEPATIC FUNCTION ABNORMAL [None]
  - RESPIRATORY FAILURE [None]
  - BREAST CANCER [None]
